FAERS Safety Report 11542773 (Version 1)
Quarter: 2015Q3

REPORT INFORMATION
  Report Type: Spontaneous
  Country: US (occurrence: US)
  Receive Date: 20150923
  Receipt Date: 20150923
  Transmission Date: 20151125
  Serious: No
  Sender: FDA-Public Use
  Company Number: US-TEVA-595597USA

PATIENT
  Sex: Male

DRUGS (5)
  1. NUVIGIL [Suspect]
     Active Substance: ARMODAFINIL
     Dosage: 300 MILLIGRAM DAILY;
     Dates: start: 2014
  2. PROVIGIL [Suspect]
     Active Substance: MODAFINIL
     Dates: start: 2013
  3. MODAFINIL. [Suspect]
     Active Substance: MODAFINIL
  4. NUVIGIL [Suspect]
     Active Substance: ARMODAFINIL
     Indication: SLEEP APNOEA SYNDROME
     Dosage: 250 MILLIGRAM DAILY;
     Dates: start: 2014
  5. CIALIS [Concomitant]
     Active Substance: TADALAFIL

REACTIONS (4)
  - Incorrect product storage [Unknown]
  - Somnolence [Unknown]
  - Drug ineffective [Unknown]
  - Product quality issue [Unknown]
